FAERS Safety Report 16866729 (Version 1)
Quarter: 2019Q4

REPORT INFORMATION
  Report Type: Spontaneous
  Country: US (occurrence: US)
  Receive Date: 20190928
  Receipt Date: 20190928
  Transmission Date: 20200122
  Serious: Yes (Other)
  Sender: FDA-Public Use
  Company Number: None

PATIENT
  Age: 57 Year
  Sex: Female
  Weight: 65.25 kg

DRUGS (1)
  1. CIPRO [Suspect]
     Active Substance: CIPROFLOXACIN HYDROCHLORIDE
     Indication: EAR INFECTION
     Dates: start: 20190905, end: 20190909

REACTIONS (6)
  - Panic attack [None]
  - Diarrhoea [None]
  - Anxiety [None]
  - Pruritus [None]
  - Psychotic disorder [None]
  - Hypoaesthesia [None]

NARRATIVE: CASE EVENT DATE: 20190909
